FAERS Safety Report 17600327 (Version 2)
Quarter: 2020Q2

REPORT INFORMATION
  Report Type: Spontaneous
  Country: TW (occurrence: TW)
  Receive Date: 20200330
  Receipt Date: 20200617
  Transmission Date: 20200713
  Serious: Yes (Death)
  Sender: FDA-Public Use
  Company Number: TW-CELGENEUS-TWN-20200309757

PATIENT
  Sex: Male
  Weight: 66.2 kg

DRUGS (6)
  1. POSACONAZOLE [Concomitant]
     Active Substance: POSACONAZOLE
     Indication: FUNGAL INFECTION
     Dosage: 300 MILLIGRAM
     Route: 065
     Dates: start: 20200304, end: 20200323
  2. ULTRACET [Concomitant]
     Active Substance: ACETAMINOPHEN\TRAMADOL HYDROCHLORIDE
     Indication: PAIN MANAGEMENT
     Dosage: 37.5/325 MG X 4
     Route: 048
     Dates: start: 20200317, end: 20200324
  3. HYDROXYUREA. [Concomitant]
     Active Substance: HYDROXYUREA
     Indication: CYTOREDUCTIVE SURGERY
     Dosage: 1500 MILLIGRAM
     Route: 065
     Dates: start: 20200301, end: 20200321
  4. IDHIFA [Suspect]
     Active Substance: ENASIDENIB MESYLATE
     Indication: ACUTE MYELOID LEUKAEMIA
     Dosage: 100 MILLIGRAM
     Route: 048
     Dates: start: 20200221, end: 20200320
  5. ALPRAZOLAM. [Concomitant]
     Active Substance: ALPRAZOLAM
     Indication: HYPNOTHERAPY
     Dosage: .5 MILLIGRAM
     Route: 065
     Dates: start: 20200301, end: 20200323
  6. FEXOFENADINE [Concomitant]
     Active Substance: FEXOFENADINE HYDROCHLORIDE
     Indication: RHINORRHOEA
     Dosage: 180 MILLIGRAM
     Route: 065
     Dates: start: 20200301, end: 20200324

REACTIONS (1)
  - Septic shock [Fatal]
